FAERS Safety Report 8816776 (Version 1)
Quarter: 2012Q4

REPORT INFORMATION
  Report Type: Spontaneous
  Country: US (occurrence: None)
  Receive Date: 20121001
  Receipt Date: 20121001
  Transmission Date: 20130627
  Serious: Yes (Hospitalization)
  Sender: FDA-Public Use
  Company Number: UTC-023381

PATIENT
  Age: 54 Year
  Sex: Female
  Weight: 65 kg

DRUGS (3)
  1. REMODULIN [Suspect]
     Indication: PRIMARY PULMONARY HYPERTENSION
     Dosage: 41.76 ug/kg (0.029 ug/kg, 1 in 1 min), subcutaneous
     Route: 058
     Dates: start: 20120203
  2. REVATIO [Concomitant]
  3. LETAIRIS (AMBRISENTAN) [Concomitant]

REACTIONS (3)
  - Infusion site infection [None]
  - Dyspnoea [None]
  - Fatigue [None]
